FAERS Safety Report 9307064 (Version 1)
Quarter: 2013Q2

REPORT INFORMATION
  Report Type: Spontaneous
  Country: US (occurrence: US)
  Receive Date: 20130523
  Receipt Date: 20130523
  Transmission Date: 20140414
  Serious: Yes (Life-Threatening, Other)
  Sender: FDA-Public Use
  Company Number: US-ELI_LILLY_AND_COMPANY-US201305004832

PATIENT
  Sex: Female

DRUGS (1)
  1. FORTEO [Suspect]
     Dosage: UNK
     Dates: end: 201111

REACTIONS (4)
  - Cardio-respiratory arrest [Unknown]
  - Osteonecrosis [Unknown]
  - Drug prescribing error [Unknown]
  - Bone disorder [Unknown]
